FAERS Safety Report 6121332-5 (Version None)
Quarter: 2009Q1

REPORT INFORMATION
  Report Type: 
  Country: None (occurrence: None)
  Receive Date: 20090313
  Receipt Date: 20090225
  Transmission Date: 20090719
  Serious: Yes (Other)
  Sender: FDA-Public Use
  Company Number: 2009US000344

PATIENT
  Age: 60 Year
  Sex: Male

DRUGS (5)
  1. AMBISOME [Suspect]
     Indication: PULMONARY MYCOSIS
     Dosage: 175 MG, UID/QD, IV NOS, 560 MG, UID, QD, IV
     Route: 042
     Dates: start: 20090107, end: 20090119
  2. AMBISOME [Suspect]
     Indication: PULMONARY MYCOSIS
     Dosage: 175 MG, UID/QD, IV NOS, 560 MG, UID, QD, IV
     Route: 042
     Dates: start: 20090121, end: 20090121
  3. VFEND [Suspect]
     Indication: PULMONARY MYCOSIS
     Dosage: 800 MG, UID/QD, IV NOS ; 560 MG, UID/QD, IV NOS
     Route: 042
     Dates: start: 20090120, end: 20090120
  4. VFEND [Suspect]
     Indication: PULMONARY MYCOSIS
     Dosage: 800 MG, UID/QD, IV NOS ; 560 MG, UID/QD, IV NOS
     Route: 042
     Dates: start: 20090121, end: 20090121
  5. MEROPEN (MEROPENEM TRIHYDRATE) [Concomitant]

REACTIONS (2)
  - HYPOKALAEMIA [None]
  - QUADRIPLEGIA [None]
